FAERS Safety Report 22329437 (Version 1)
Quarter: 2023Q2

REPORT INFORMATION
  Report Type: Other
  Country: DE (occurrence: None)
  Receive Date: 20230517
  Receipt Date: 20230517
  Transmission Date: 20230721
  Serious: Yes (Hospitalization)
  Sender: FDA-Public Use
  Company Number: DE-ROCHE-2389789

PATIENT
  Age: 51 Year
  Sex: Male

DRUGS (14)
  1. OCREVUS [Suspect]
     Active Substance: OCRELIZUMAB
     Indication: Relapsing-remitting multiple sclerosis
     Route: 042
     Dates: start: 20190814
  2. OCREVUS [Suspect]
     Active Substance: OCRELIZUMAB
     Route: 042
     Dates: start: 20190828
  3. OCREVUS [Suspect]
     Active Substance: OCRELIZUMAB
     Route: 042
  4. OCREVUS [Suspect]
     Active Substance: OCRELIZUMAB
     Route: 042
     Dates: start: 20200804
  5. OCREVUS [Suspect]
     Active Substance: OCRELIZUMAB
     Dosage: THIRD MAINTENANCE DOSE
     Route: 042
     Dates: start: 20210204
  6. OCREVUS [Suspect]
     Active Substance: OCRELIZUMAB
     Dosage: FOURTH MAINTENANCE DOSE
     Route: 042
     Dates: start: 20210804
  7. COMIRNATY [Suspect]
     Active Substance: TOZINAMERAN
     Indication: Product used for unknown indication
     Dosage: 3RD VACCINE: 26/NOV/2021
     Route: 065
  8. DEXAMETHASONE\NEOMYCIN SULFATE\POLYMYXIN B SULFATE [Suspect]
     Active Substance: DEXAMETHASONE\NEOMYCIN SULFATE\POLYMYXIN B SULFATE
     Indication: Product used for unknown indication
     Route: 065
  9. DALFAMPRIDINE [Concomitant]
     Active Substance: DALFAMPRIDINE
  10. LISINOPRIL [Concomitant]
     Active Substance: LISINOPRIL
     Dosage: 10/12.5 MG, 1-0-0
  11. BISOPROLOL [Concomitant]
     Active Substance: BISOPROLOL
  12. TAMSULOSIN [Concomitant]
     Active Substance: TAMSULOSIN
  13. AMLODIPINE [Concomitant]
     Active Substance: AMLODIPINE BESYLATE
  14. OMEPRAZOLE [Concomitant]
     Active Substance: OMEPRAZOLE
     Dosage: AS REQUIRED

REACTIONS (18)
  - Fall [Unknown]
  - Femoral neck fracture [Not Recovered/Not Resolved]
  - Fatigue [Recovered/Resolved]
  - Gait disturbance [Not Recovered/Not Resolved]
  - Coordination abnormal [Not Recovered/Not Resolved]
  - Balance disorder [Not Recovered/Not Resolved]
  - Gastrointestinal disorder [Not Recovered/Not Resolved]
  - Malaise [Not Recovered/Not Resolved]
  - Asthenia [Not Recovered/Not Resolved]
  - Hypoaesthesia [Not Recovered/Not Resolved]
  - Apathy [Not Recovered/Not Resolved]
  - Hordeolum [Recovered/Resolved]
  - Headache [Recovered/Resolved]
  - Folliculitis [Recovering/Resolving]
  - Intraocular pressure increased [Recovered/Resolved]
  - Fatigue [Recovered/Resolved]
  - COVID-19 [Recovered/Resolved]
  - Haematoma [Not Recovered/Not Resolved]

NARRATIVE: CASE EVENT DATE: 20190814
